FAERS Safety Report 6434692-2 (Version None)
Quarter: 2009Q4

REPORT INFORMATION
  Report Type: 
  Country: None (occurrence: None)
  Receive Date: 20091109
  Receipt Date: 20091109
  Transmission Date: 20100525
  Serious: Yes (Life-Threatening, Other)
  Sender: FDA-Public Use
  Company Number: None

PATIENT
  Sex: Female
  Weight: 50 kg

DRUGS (2)
  1. KETAMINE HCL [Suspect]
     Indication: PAIN
     Dates: start: 20090515, end: 20090517
  2. KETAMINE HCL [Suspect]
     Indication: PALLIATIVE CARE
     Dates: start: 20090515, end: 20090517

REACTIONS (1)
  - CONVULSION [None]
